FAERS Safety Report 20166057 (Version 3)
Quarter: 2022Q3

REPORT INFORMATION
  Report Type: Report from Study
  Country: CA (occurrence: CA)
  Receive Date: 20211209
  Receipt Date: 20220712
  Transmission Date: 20221026
  Serious: Yes (Hospitalization, Other)
  Sender: FDA-Public Use
  Company Number: CA-GLAXOSMITHKLINE-CA2021231951

PATIENT

DRUGS (5)
  1. MEPOLIZUMAB [Suspect]
     Active Substance: MEPOLIZUMAB
     Indication: Asthma
     Dosage: 100 MG, Z(EVERY 4 WEEKS)
     Route: 058
     Dates: start: 20180416
  2. BREO ELLIPTA [Concomitant]
     Active Substance: FLUTICASONE FUROATE\VILANTEROL TRIFENATATE
     Indication: Product used for unknown indication
     Dosage: UNK
  3. VENTOLIN [Concomitant]
     Active Substance: ALBUTEROL SULFATE
     Indication: Product used for unknown indication
     Dosage: UNK
  4. ALVESCO [Concomitant]
     Active Substance: CICLESONIDE
     Indication: Product used for unknown indication
     Dosage: 1 PUFF(S), BID
     Route: 055
  5. PREDNISONE [Concomitant]
     Active Substance: PREDNISONE
     Indication: Product used for unknown indication
     Dosage: 50 MG FOR 5 DAYS
     Route: 048

REACTIONS (9)
  - Ankle fracture [Unknown]
  - Fall [Unknown]
  - Memory impairment [Unknown]
  - Dementia [Unknown]
  - Tooth extraction [Unknown]
  - Poor quality sleep [Unknown]
  - Depression [Unknown]
  - Dyspnoea [Unknown]
  - Stress [Unknown]

NARRATIVE: CASE EVENT DATE: 20211001
